FAERS Safety Report 18740474 (Version 1)
Quarter: 2021Q1

REPORT INFORMATION
  Report Type: Other
  Country: ER (occurrence: ER)
  Receive Date: 20210114
  Receipt Date: 20210114
  Transmission Date: 20210419
  Serious: Yes (Disabling, Other)
  Sender: FDA-Public Use
  Company Number: ER-NEOPHARMA INC-000379

PATIENT
  Age: 53 Year
  Sex: Female

DRUGS (1)
  1. AMOXICILLIN. [Suspect]
     Active Substance: AMOXICILLIN
     Indication: CHRONIC SINUSITIS
     Dosage: DAILY
     Route: 048

REACTIONS (5)
  - Deafness [Recovered/Resolved]
  - Nephritis [Unknown]
  - Acute kidney injury [Unknown]
  - Pyrexia [Unknown]
  - Rash [Unknown]
